FAERS Safety Report 11266103 (Version 4)
Quarter: 2016Q1

REPORT INFORMATION
  Report Type: Spontaneous
  Country: FR (occurrence: FR)
  Receive Date: 20150713
  Receipt Date: 20160307
  Transmission Date: 20160525
  Serious: Yes (Congenital Anomaly)
  Sender: FDA-Public Use
  Company Number: FR-PFIZER INC-2015230585

PATIENT
  Sex: Male
  Weight: 4.28 kg

DRUGS (2)
  1. CYTOTEC [Suspect]
     Active Substance: MISOPROSTOL
     Indication: ABORTION INDUCED
     Dosage: 400 ?G, UNK (TOTAL)
     Route: 064
     Dates: start: 2012, end: 2012
  2. MIFEGYNE [Suspect]
     Active Substance: MIFEPRISTONE
     Indication: ABORTION INDUCED
     Dosage: 200 MG, UNK (TOTAL)
     Route: 064
     Dates: start: 2012, end: 2012

REACTIONS (4)
  - Maternal exposure during pregnancy [Not Recovered/Not Resolved]
  - Developmental delay [Not Recovered/Not Resolved]
  - Autism [Not Recovered/Not Resolved]
  - Macrosomia [Unknown]

NARRATIVE: CASE EVENT DATE: 2012
